FAERS Safety Report 18667866 (Version 1)
Quarter: 2020Q4

REPORT INFORMATION
  Report Type: Spontaneous
  Country: FR (occurrence: FR)
  Receive Date: 20201228
  Receipt Date: 20201228
  Transmission Date: 20210114
  Serious: Yes (Hospitalization, Other)
  Sender: FDA-Public Use
  Company Number: FR-SA-2020SA369372

PATIENT

DRUGS (12)
  1. VILDAGLIPTINE [Concomitant]
     Active Substance: VILDAGLIPTIN
  2. PRAVASTATIN SODIUM. [Concomitant]
     Active Substance: PRAVASTATIN SODIUM
  3. LANSOPRAZOLE. [Concomitant]
     Active Substance: LANSOPRAZOLE
  4. RIFAMPICIN [Suspect]
     Active Substance: RIFAMPIN
     Indication: AMPUTATION
     Route: 048
     Dates: start: 20191220, end: 20200111
  5. RAMIPRIL. [Concomitant]
     Active Substance: RAMIPRIL
  6. METOPROLOL TARTRATE. [Concomitant]
     Active Substance: METOPROLOL TARTRATE
  7. FUROSEMIDE. [Concomitant]
     Active Substance: FUROSEMIDE
  8. ASPIRINE [Concomitant]
     Active Substance: ASPIRIN
  9. NICORANDIL [Concomitant]
     Active Substance: NICORANDIL
  10. DOXYCYCLINE. [Suspect]
     Active Substance: DOXYCYCLINE
     Indication: AMPUTATION
     Route: 048
     Dates: start: 20191225, end: 20200111
  11. ABASAGLAR [Concomitant]
     Active Substance: INSULIN GLARGINE
  12. HUMALOG [Concomitant]
     Active Substance: INSULIN LISPRO

REACTIONS (9)
  - Malaise [Recovered/Resolved]
  - Hyperleukocytosis [Recovered/Resolved]
  - Hypokalaemia [Recovered/Resolved]
  - Decreased appetite [Recovered/Resolved]
  - Clostridium difficile colitis [Recovered/Resolved]
  - Diarrhoea [Recovered/Resolved]
  - Asthenia [Recovered/Resolved]
  - Vomiting [Recovered/Resolved]
  - Weight decreased [Recovered/Resolved]

NARRATIVE: CASE EVENT DATE: 20200108
